FAERS Safety Report 24641351 (Version 7)
Quarter: 2025Q3

REPORT INFORMATION
  Report Type: Report from Study
  Country: GB (occurrence: GB)
  Receive Date: 20241120
  Receipt Date: 20250811
  Transmission Date: 20251020
  Serious: Yes (Congenital Anomaly, Other)
  Sender: MYLAN
  Company Number: GB-MYLANLABS-2024M1102852

PATIENT
  Sex: Male
  Weight: 2.73 kg

DRUGS (32)
  1. EMTRICITABINE\TENOFOVIR DISOPROXIL [Suspect]
     Active Substance: EMTRICITABINE\TENOFOVIR DISOPROXIL
     Indication: Prophylaxis against HIV infection
     Dosage: 1 DOSAGE FORM, QD (1 TABLET/CAPSULE)
     Dates: start: 20240912, end: 20241201
  2. EMTRICITABINE\TENOFOVIR DISOPROXIL [Suspect]
     Active Substance: EMTRICITABINE\TENOFOVIR DISOPROXIL
     Dosage: 1 DOSAGE FORM, QD (1 TABLET/CAPSULE)
     Dates: start: 20240912, end: 20241201
  3. EMTRICITABINE\TENOFOVIR DISOPROXIL [Suspect]
     Active Substance: EMTRICITABINE\TENOFOVIR DISOPROXIL
     Dosage: 1 DOSAGE FORM, QD (1 TABLET/CAPSULE)
     Route: 064
     Dates: start: 20240912, end: 20241201
  4. EMTRICITABINE\TENOFOVIR DISOPROXIL [Suspect]
     Active Substance: EMTRICITABINE\TENOFOVIR DISOPROXIL
     Dosage: 1 DOSAGE FORM, QD (1 TABLET/CAPSULE)
     Route: 064
     Dates: start: 20240912, end: 20241201
  5. EMTRICITABINE\TENOFOVIR DISOPROXIL [Suspect]
     Active Substance: EMTRICITABINE\TENOFOVIR DISOPROXIL
     Dosage: 1 DOSAGE FORM, QD (1 TABLET/CAPSULE)
     Dates: start: 20240912, end: 20241201
  6. EMTRICITABINE\TENOFOVIR DISOPROXIL [Suspect]
     Active Substance: EMTRICITABINE\TENOFOVIR DISOPROXIL
     Dosage: 1 DOSAGE FORM, QD (1 TABLET/CAPSULE)
     Dates: start: 20240912, end: 20241201
  7. EMTRICITABINE\TENOFOVIR DISOPROXIL [Suspect]
     Active Substance: EMTRICITABINE\TENOFOVIR DISOPROXIL
     Dosage: 1 DOSAGE FORM, QD (1 TABLET/CAPSULE)
     Route: 064
     Dates: start: 20240912, end: 20241201
  8. EMTRICITABINE\TENOFOVIR DISOPROXIL [Suspect]
     Active Substance: EMTRICITABINE\TENOFOVIR DISOPROXIL
     Dosage: 1 DOSAGE FORM, QD (1 TABLET/CAPSULE)
     Route: 064
     Dates: start: 20240912, end: 20241201
  9. FOLATE SODIUM [Concomitant]
     Active Substance: FOLATE SODIUM
  10. FOLATE SODIUM [Concomitant]
     Active Substance: FOLATE SODIUM
  11. FOLATE SODIUM [Concomitant]
     Active Substance: FOLATE SODIUM
     Route: 064
  12. FOLATE SODIUM [Concomitant]
     Active Substance: FOLATE SODIUM
     Route: 064
  13. FOLATE SODIUM [Concomitant]
     Active Substance: FOLATE SODIUM
  14. FOLATE SODIUM [Concomitant]
     Active Substance: FOLATE SODIUM
  15. FOLATE SODIUM [Concomitant]
     Active Substance: FOLATE SODIUM
     Route: 064
  16. FOLATE SODIUM [Concomitant]
     Active Substance: FOLATE SODIUM
     Route: 064
  17. BECLOMETHASONE DIPROPIONATE [Concomitant]
     Active Substance: BECLOMETHASONE DIPROPIONATE
  18. BECLOMETHASONE DIPROPIONATE [Concomitant]
     Active Substance: BECLOMETHASONE DIPROPIONATE
  19. BECLOMETHASONE DIPROPIONATE [Concomitant]
     Active Substance: BECLOMETHASONE DIPROPIONATE
     Route: 064
  20. BECLOMETHASONE DIPROPIONATE [Concomitant]
     Active Substance: BECLOMETHASONE DIPROPIONATE
     Route: 064
  21. BECLOMETHASONE DIPROPIONATE [Concomitant]
     Active Substance: BECLOMETHASONE DIPROPIONATE
  22. BECLOMETHASONE DIPROPIONATE [Concomitant]
     Active Substance: BECLOMETHASONE DIPROPIONATE
  23. BECLOMETHASONE DIPROPIONATE [Concomitant]
     Active Substance: BECLOMETHASONE DIPROPIONATE
     Route: 064
  24. BECLOMETHASONE DIPROPIONATE [Concomitant]
     Active Substance: BECLOMETHASONE DIPROPIONATE
     Route: 064
  25. ALBUTEROL [Concomitant]
     Active Substance: ALBUTEROL
  26. ALBUTEROL [Concomitant]
     Active Substance: ALBUTEROL
  27. ALBUTEROL [Concomitant]
     Active Substance: ALBUTEROL
     Route: 064
  28. ALBUTEROL [Concomitant]
     Active Substance: ALBUTEROL
     Route: 064
  29. ALBUTEROL [Concomitant]
     Active Substance: ALBUTEROL
  30. ALBUTEROL [Concomitant]
     Active Substance: ALBUTEROL
  31. ALBUTEROL [Concomitant]
     Active Substance: ALBUTEROL
     Route: 064
  32. ALBUTEROL [Concomitant]
     Active Substance: ALBUTEROL
     Route: 064

REACTIONS (5)
  - Fallot^s tetralogy [Unknown]
  - Ultrasound foetal abnormal [Unknown]
  - Pulmonary valve stenosis [Unknown]
  - Aortic valve prolapse [Unknown]
  - Foetal exposure during pregnancy [Recovered/Resolved]

NARRATIVE: CASE EVENT DATE: 20240927
